FAERS Safety Report 6596441-7 (Version None)
Quarter: 2010Q1

REPORT INFORMATION
  Report Type: 
  Country: None (occurrence: None)
  Receive Date: 20100223
  Receipt Date: 20100215
  Transmission Date: 20100710
  Serious: Yes (Other)
  Sender: FDA-Public Use
  Company Number: US-AMGEN-QUU393038

PATIENT
  Sex: Male

DRUGS (1)
  1. ENBREL [Suspect]
     Indication: PSORIASIS
     Route: 058
     Dates: start: 20031201

REACTIONS (5)
  - BLOOD PRESSURE INCREASED [None]
  - NIGHT SWEATS [None]
  - PSORIASIS [None]
  - PYREXIA [None]
  - TUBERCULIN TEST POSITIVE [None]
